FAERS Safety Report 4549994-4 (Version None)
Quarter: 2005Q1

REPORT INFORMATION
  Report Type: 
  Country: None (occurrence: None)
  Receive Date: 20050110
  Receipt Date: 20041227
  Transmission Date: 20050727
  Serious: Yes (Other)
  Sender: FDA-Public Use
  Company Number: SUSI-2004-00748

PATIENT
  Age: 6 Year
  Sex: Male

DRUGS (3)
  1. CARBATROL [Suspect]
     Indication: CONVULSION
     Dosage: SEE IMAGE
     Dates: start: 20040201, end: 20041215
  2. CARBATROL [Suspect]
     Indication: CONVULSION
     Dosage: SEE IMAGE
     Dates: start: 20041201
  3. TOPAMAX [Concomitant]

REACTIONS (4)
  - ABNORMAL BEHAVIOUR [None]
  - CONVULSION [None]
  - SOMNOLENCE [None]
  - VISION BLURRED [None]
